FAERS Safety Report 4329093-7 (Version None)
Quarter: 2004Q1

REPORT INFORMATION
  Report Type: 
  Country: None (occurrence: None)
  Receive Date: 20040319
  Receipt Date: 20040205
  Transmission Date: 20041129
  Serious: No
  Sender: FDA-Public Use
  Company Number: US-JNJFOC-20031103506

PATIENT
  Age: 27 Year
  Sex: Female
  Weight: 47.1741 kg

DRUGS (5)
  1. ORTHO EVRA [Suspect]
     Indication: DYSMENORRHOEA
     Dosage: 1 DOSE(S), 3 IN 4 WEEK, TRANSDERMAL
     Route: 062
     Dates: start: 20030901, end: 20040108
  2. PEPCID [Concomitant]
  3. PHENERGAN [Concomitant]
  4. TORODOL (KETOROLAC TROMETHAMINE) [Concomitant]
  5. ETODOLAC [Concomitant]

REACTIONS (5)
  - ABDOMINAL PAIN [None]
  - BACK PAIN [None]
  - CYSTITIS [None]
  - MENORRHAGIA [None]
  - METRORRHAGIA [None]
